FAERS Safety Report 6590354-2 (Version None)
Quarter: 2010Q1

REPORT INFORMATION
  Report Type: 
  Country: None (occurrence: None)
  Receive Date: 20100219
  Receipt Date: 20100209
  Transmission Date: 20100710
  Serious: Yes (Life-Threatening, Hospitalization)
  Sender: FDA-Public Use
  Company Number: JP-JNJFOC-20091001912

PATIENT
  Sex: Female

DRUGS (4)
  1. REMICADE [Suspect]
     Indication: RHEUMATOID ARTHRITIS
     Dosage: FIRST INFUSION
     Route: 042
     Dates: end: 20090727
  2. REMICADE [Suspect]
     Dosage: 6 INFUSIONS ADMINISTERED ON UNKNOWN DATES
     Route: 042
     Dates: end: 20090727
  3. REMICADE [Suspect]
     Dosage: 8TH INFUSION
     Route: 042
     Dates: end: 20090727
  4. RHEUMATREX [Concomitant]
     Indication: RHEUMATOID ARTHRITIS
     Route: 048

REACTIONS (3)
  - DISSEMINATED INTRAVASCULAR COAGULATION [None]
  - HEPATITIS B [None]
  - LIVER TRANSPLANT [None]
